FAERS Safety Report 23728578 (Version 1)
Quarter: 2024Q2

REPORT INFORMATION
  Report Type: Spontaneous
  Country: CN (occurrence: CN)
  Receive Date: 20240410
  Receipt Date: 20240410
  Transmission Date: 20240716
  Serious: Yes (Life-Threatening)
  Sender: FDA-Public Use
  Company Number: CN-FreseniusKabi-FK202405724

PATIENT
  Age: 21 Year
  Sex: Female
  Weight: 39 kg

DRUGS (2)
  1. PROPOFOL [Suspect]
     Active Substance: PROPOFOL
     Indication: General anaesthesia
     Dosage: ROUTE OF ADMIN: INTRAVENOUS ?FORM OF ADMIN: INJECTION
     Dates: start: 20240320, end: 20240320
  2. FENTANYL CITRATE [Concomitant]
     Active Substance: FENTANYL CITRATE
     Indication: General anaesthesia
     Dosage: 0.05 MG?ROUTE: INTRAVENOUS (NOT OTHERWISE SPECIFIED)
     Dates: start: 20240320, end: 20240320

REACTIONS (2)
  - Seizure like phenomena [Recovering/Resolving]
  - Dyspnoea [Recovering/Resolving]

NARRATIVE: CASE EVENT DATE: 20240320
